FAERS Safety Report 8616704-0 (Version None)
Quarter: 2012Q3

REPORT INFORMATION
  Report Type: 
  Country: None (occurrence: None)
  Receive Date: 20120823
  Receipt Date: 20120820
  Transmission Date: 20120928
  Serious: Yes (Other)
  Sender: FDA-Public Use
  Company Number: DE-ROCHE-1106564

PATIENT
  Age: 72 Year
  Sex: Female

DRUGS (2)
  1. LUCENTIS [Suspect]
     Indication: AGE-RELATED MACULAR DEGENERATION
     Route: 050
     Dates: start: 20120701
  2. LUCENTIS [Suspect]
     Route: 050
     Dates: start: 20120806

REACTIONS (3)
  - CONJUNCTIVITIS [None]
  - ULCERATIVE KERATITIS [None]
  - DRUG INEFFECTIVE [None]
